FAERS Safety Report 5755393-X (Version None)
Quarter: 2008Q2

REPORT INFORMATION
  Report Type: 
  Country: None (occurrence: None)
  Receive Date: 20080529
  Receipt Date: 20080529
  Transmission Date: 20081010
  Serious: Yes (Death)
  Sender: FDA-Public Use
  Company Number: None

PATIENT
  Age: 62 Year
  Sex: Female
  Weight: 65.7716 kg

DRUGS (1)
  1. CEFEPIME [Suspect]
     Indication: STAPHYLOCOCCAL SEPSIS
     Dosage: 2 GRAMS EVERY 12 HOURS IV
     Route: 042
     Dates: start: 20080130, end: 20080203

REACTIONS (5)
  - COMA [None]
  - INCORRECT DOSE ADMINISTERED [None]
  - INTENTIONAL DRUG MISUSE [None]
  - MENTAL STATUS CHANGES [None]
  - PHARMACEUTICAL PRODUCT COMPLAINT [None]
